FAERS Safety Report 20516539 (Version 1)
Quarter: 2022Q1

REPORT INFORMATION
  Report Type: Spontaneous
  Country: JP (occurrence: JP)
  Receive Date: 20220225
  Receipt Date: 20220225
  Transmission Date: 20220423
  Serious: Yes (Other)
  Sender: FDA-Public Use
  Company Number: JP-SUN PHARMACEUTICAL INDUSTRIES LTD-2022RR-327653

PATIENT
  Age: 83 Year
  Sex: Female

DRUGS (2)
  1. QUETIAPINE [Suspect]
     Active Substance: QUETIAPINE
     Indication: Psychiatric symptom
     Dosage: 600 MILLIGRAM, DAILY
     Route: 065
  2. ARIPIPRAZOLE [Suspect]
     Active Substance: ARIPIPRAZOLE
     Indication: Psychiatric symptom
     Dosage: 24 MILLIGRAM, DAILY
     Route: 065

REACTIONS (3)
  - Therapeutic product effect incomplete [Unknown]
  - Drug ineffective [Unknown]
  - Condition aggravated [Unknown]
